FAERS Safety Report 19004883 (Version 2)
Quarter: 2021Q1

REPORT INFORMATION
  Report Type: Spontaneous
  Country: US (occurrence: US)
  Receive Date: 20210312
  Receipt Date: 20210318
  Transmission Date: 20210420
  Serious: Yes (Life-Threatening, Other)
  Sender: FDA-Public Use
  Company Number: US-SA-2021SA083940

PATIENT
  Age: 62 Year
  Sex: Male
  Weight: 86 kg

DRUGS (13)
  1. CARBOPLATIN. [Suspect]
     Active Substance: CARBOPLATIN
     Dosage: UNK
     Dates: start: 20200813, end: 20200814
  2. ETOPOSIDE. [Suspect]
     Active Substance: ETOPOSIDE
     Indication: B-CELL LYMPHOMA
     Dosage: UNK
     Route: 042
     Dates: start: 20200724, end: 20200725
  3. ETOPOSIDE. [Suspect]
     Active Substance: ETOPOSIDE
     Dosage: UNK
     Route: 042
     Dates: start: 20200813, end: 20200815
  4. IFOSFAMIDE. [Suspect]
     Active Substance: IFOSFAMIDE
     Dosage: 9400 MG
     Route: 042
     Dates: start: 20200724, end: 20200725
  5. IFOSFAMIDE. [Suspect]
     Active Substance: IFOSFAMIDE
     Dosage: UNK
     Dates: start: 20200813, end: 20200815
  6. TOCILIZUMAB. [Concomitant]
     Active Substance: TOCILIZUMAB
     Indication: PRODUCT USED FOR UNKNOWN INDICATION
     Dosage: UNK
     Dates: start: 20200929, end: 20200930
  7. CARBOPLATIN. [Suspect]
     Active Substance: CARBOPLATIN
     Indication: B-CELL LYMPHOMA
     Dosage: 665 MG, BID
     Dates: start: 20200724, end: 20200725
  8. CYCLOPHOSPHAMIDE. [Suspect]
     Active Substance: CYCLOPHOSPHAMIDE
     Indication: B-CELL LYMPHOMA
     Dosage: 600 MG
     Route: 042
     Dates: start: 20200918, end: 20200920
  9. RITUXIMAB. [Suspect]
     Active Substance: RITUXIMAB
     Indication: B-CELL LYMPHOMA
     Dosage: 750 MG
     Route: 042
     Dates: start: 20200723, end: 20200725
  10. RITUXIMAB. [Suspect]
     Active Substance: RITUXIMAB
     Dosage: 750 MG
     Route: 042
     Dates: start: 20200813, end: 20200815
  11. FLUDARABINE PHOSPHATE. [Suspect]
     Active Substance: FLUDARABINE PHOSPHATE
     Indication: B-CELL LYMPHOMA
     Dosage: 60 MG, QD
     Route: 042
     Dates: start: 20200918, end: 20200920
  12. LOVENOX [Suspect]
     Active Substance: ENOXAPARIN SODIUM
     Indication: PRODUCT USED FOR UNKNOWN INDICATION
     Dosage: 60 MG, BID
     Route: 065
     Dates: start: 202007, end: 20201009
  13. TOCILIZUMAB. [Concomitant]
     Active Substance: TOCILIZUMAB
     Dosage: 2400 MG (4 DOSES)

REACTIONS (7)
  - Extravasation [Recovered/Resolved with Sequelae]
  - Retroperitoneal haemorrhage [Recovered/Resolved with Sequelae]
  - Arthralgia [Unknown]
  - Tendonitis [Recovered/Resolved with Sequelae]
  - Haemoglobin decreased [Unknown]
  - Arterial haemorrhage [Recovered/Resolved with Sequelae]
  - Haematoma [Recovered/Resolved with Sequelae]

NARRATIVE: CASE EVENT DATE: 20201008
